FAERS Safety Report 5285091-0 (Version None)
Quarter: 2007Q2

REPORT INFORMATION
  Report Type: 
  Country: None (occurrence: None)
  Receive Date: 20070403
  Receipt Date: 20070322
  Transmission Date: 20071010
  Serious: Yes (Other)
  Sender: FDA-Public Use
  Company Number: DE-PFIZER INC-2007023655

PATIENT
  Age: 52 Year
  Sex: Male

DRUGS (2)
  1. AZULFIDINE [Suspect]
     Indication: COLITIS ULCERATIVE
  2. CORTISONE ACETATE [Concomitant]

REACTIONS (1)
  - MYCOSIS FUNGOIDES [None]
